FAERS Safety Report 8839974 (Version 1)
Quarter: 2012Q4

REPORT INFORMATION
  Report Type: 
  Country: US (occurrence: US)
  Receive Date: 20121015
  Receipt Date: 20121015
  Transmission Date: 20130627
  Serious: No
  Sender: FDA-Public Use
  Company Number: US-PFIZER INC-2012253252

PATIENT
  Age: 35 Year
  Sex: Male
  Weight: 63.49 kg

DRUGS (3)
  1. VIAGRA [Suspect]
     Indication: ERECTILE DYSFUNCTION
     Dosage: 50 mg, 1x/day
     Route: 048
     Dates: start: 20121010
  2. LYRICA [Concomitant]
     Indication: FIBROMYALGIA
     Dosage: 125 mg, 4x/day
  3. CYMBALTA [Concomitant]
     Indication: FIBROMYALGIA
     Dosage: 60 mg, 2x/day

REACTIONS (1)
  - Drug ineffective [Unknown]
